FAERS Safety Report 20040759 (Version 1)
Quarter: 2021Q4

REPORT INFORMATION
  Report Type: Spontaneous
  Country: US (occurrence: None)
  Receive Date: 20211103
  Receipt Date: 20211103
  Transmission Date: 20220303
  Serious: Yes (Life-Threatening)
  Sender: FDA-Public Use
  Company Number: None

PATIENT
  Age: 55 Year
  Sex: Male
  Weight: 94.80 kg

DRUGS (1)
  1. SUMATRIPTAN [Suspect]
     Active Substance: SUMATRIPTAN
     Indication: Cardiac arrest
     Dosage: FREQUENCY : ONCE;?
     Route: 042
     Dates: start: 20210321, end: 20210321

REACTIONS (7)
  - Angina pectoris [None]
  - Migraine [None]
  - Ventricular fibrillation [None]
  - Atherosclerotic plaque rupture [None]
  - Coronary arterial stent insertion [None]
  - Coronary artery restenosis [None]
  - Blood pressure increased [None]

NARRATIVE: CASE EVENT DATE: 20210321
